FAERS Safety Report 7469507-7 (Version None)
Quarter: 2011Q2

REPORT INFORMATION
  Report Type: 
  Country: None (occurrence: None)
  Receive Date: 20110506
  Receipt Date: 20110506
  Transmission Date: 20111010
  Serious: Yes (Disabling, Other)
  Sender: FDA-Public Use
  Company Number: None

PATIENT
  Sex: Male
  Weight: 89.8122 kg

DRUGS (1)
  1. VALPROIC ACID [Suspect]
     Indication: BIPOLAR DISORDER
     Dosage: 750MG 2X DAILY ORAL
     Route: 048
     Dates: start: 20090401, end: 20090901

REACTIONS (2)
  - GASTROINTESTINAL DISORDER [None]
  - SKIN DISCOLOURATION [None]
